FAERS Safety Report 7002612-8 (Version None)
Quarter: 2010Q3

REPORT INFORMATION
  Report Type: 
  Country: None (occurrence: None)
  Receive Date: 20100917
  Receipt Date: 20100917
  Transmission Date: 20110219
  Serious: Yes (Other)
  Sender: FDA-Public Use
  Company Number: None

PATIENT
  Sex: Female
  Weight: 49.8957 kg

DRUGS (1)
  1. ALENDRONATE SODIUM [Suspect]
     Indication: OSTEOPOROSIS
     Dosage: 70MG WEEKLY TAKEN BY MOUTH
     Route: 048
     Dates: start: 20100505, end: 20100913

REACTIONS (3)
  - ERYTHEMA MULTIFORME [None]
  - MOUTH ULCERATION [None]
  - WEIGHT DECREASED [None]
